FAERS Safety Report 21047874 (Version 1)
Quarter: 2022Q3

REPORT INFORMATION
  Report Type: Report from Study
  Country: US (occurrence: US)
  Receive Date: 20220706
  Receipt Date: 20220706
  Transmission Date: 20221027
  Serious: Yes (Hospitalization, Other)
  Sender: FDA-Public Use
  Company Number: US-PFIZER INC-202200921020

PATIENT
  Age: 36 Year
  Sex: Male

DRUGS (2)
  1. BRAFTOVI [Suspect]
     Active Substance: ENCORAFENIB
     Dosage: 75 MG, TAKE 6 CAPSULES
     Route: 048
     Dates: start: 20220606
  2. MEKTOVI [Suspect]
     Active Substance: BINIMETINIB
     Dosage: 3 TABLETS EVERY 12 HOURS
     Dates: start: 20220606

REACTIONS (5)
  - Dysphagia [Recovered/Resolved]
  - Nausea [Not Recovered/Not Resolved]
  - Vomiting [Not Recovered/Not Resolved]
  - Pain [Not Recovered/Not Resolved]
  - Visual impairment [Not Recovered/Not Resolved]
